FAERS Safety Report 6120316-0 (Version None)
Quarter: 2009Q1

REPORT INFORMATION
  Report Type: 
  Country: None (occurrence: None)
  Receive Date: 20090312
  Receipt Date: 20090227
  Transmission Date: 20090719
  Serious: No
  Sender: FDA-Public Use
  Company Number: B0564069A

PATIENT
  Sex: Female

DRUGS (1)
  1. ACYCLOVIR [Suspect]
     Indication: HERPES ZOSTER

REACTIONS (2)
  - ABORTION SPONTANEOUS [None]
  - DRUG EXPOSURE DURING PREGNANCY [None]
